FAERS Safety Report 9730061 (Version 2)
Quarter: 2013Q4

REPORT INFORMATION
  Report Type: Report from Study
  Country: DE (occurrence: DE)
  Receive Date: 20131204
  Receipt Date: 20131213
  Transmission Date: 20140711
  Serious: Yes (Death)
  Sender: FDA-Public Use
  Company Number: DE-CELGENEUS-062-50794-13115511

PATIENT
  Age: 70 Year
  Sex: Male

DRUGS (5)
  1. VIDAZA [Suspect]
     Indication: ACUTE MYELOID LEUKAEMIA
     Route: 050
  2. RED BLOOD CELLS [Concomitant]
     Indication: ANAEMIA
     Route: 065
  3. PLATELETS [Concomitant]
     Indication: THROMBOCYTOPENIA
     Route: 065
  4. PLATELETS [Concomitant]
     Indication: ANAEMIA
  5. VANCOMYCIN [Concomitant]
     Indication: STAPHYLOCOCCUS TEST
     Route: 065
     Dates: start: 201106

REACTIONS (1)
  - Staphylococcal sepsis [Fatal]
